FAERS Safety Report 25825531 (Version 2)
Quarter: 2025Q4

REPORT INFORMATION
  Report Type: Report from Study
  Country: US (occurrence: US)
  Receive Date: 20250919
  Receipt Date: 20251007
  Transmission Date: 20260117
  Serious: Yes (Hospitalization)
  Sender: UCB
  Company Number: US-UCBSA-2025057093

PATIENT
  Age: 49 Year
  Sex: Female

DRUGS (5)
  1. BIMEKIZUMAB [Suspect]
     Active Substance: BIMEKIZUMAB
     Indication: Psoriasis
     Dosage: 320 MILLIGRAM, EV 4 WEEKS
     Dates: start: 202504
  2. BIMEKIZUMAB [Suspect]
     Active Substance: BIMEKIZUMAB
     Indication: Psoriatic arthropathy
  3. BIMEKIZUMAB [Suspect]
     Active Substance: BIMEKIZUMAB
     Indication: Ankylosing spondylitis
  4. WELLBUTRIN [Concomitant]
     Active Substance: BUPROPION HYDROCHLORIDE
     Indication: Product used for unknown indication
     Dosage: 150 MILLIGRAM
  5. TIZANIDINE [Concomitant]
     Active Substance: TIZANIDINE
     Indication: Product used for unknown indication
     Dosage: 2 MILLIGRAM

REACTIONS (2)
  - Hospitalisation [Recovered/Resolved]
  - COVID-19 [Recovered/Resolved]

NARRATIVE: CASE EVENT DATE: 20250801
